FAERS Safety Report 24631331 (Version 1)
Quarter: 2024Q4

REPORT INFORMATION
  Report Type: Spontaneous
  Country: IN (occurrence: IN)
  Receive Date: 20241118
  Receipt Date: 20241118
  Transmission Date: 20250114
  Serious: Yes (Other)
  Sender: PFIZER
  Company Number: IN-PFIZER INC-PV202400058155

PATIENT
  Age: 67 Year
  Sex: Male
  Weight: 98.5 kg

DRUGS (11)
  1. DACOMITINIB [Suspect]
     Active Substance: DACOMITINIB
     Indication: Lung adenocarcinoma
     Dosage: 45 MG, DAILY
     Route: 048
     Dates: start: 20230511
  2. DACOMITINIB [Suspect]
     Active Substance: DACOMITINIB
     Dosage: 30 MG, DAILY
     Route: 048
     Dates: start: 20231017
  3. DACOMITINIB [Suspect]
     Active Substance: DACOMITINIB
     Dosage: 30 MG, DAILY
     Route: 048
     Dates: start: 20231212
  4. DACOMITINIB [Suspect]
     Active Substance: DACOMITINIB
     Dosage: 30 MG, DAILY
     Route: 048
     Dates: start: 20240212
  5. DACOMITINIB [Suspect]
     Active Substance: DACOMITINIB
     Dosage: 15 MG, 1X/DAY (1HR BEFORE MEAL)
     Route: 048
     Dates: start: 20240403
  6. DACOMITINIB [Suspect]
     Active Substance: DACOMITINIB
     Dosage: 15 MG, 1X/DAY
     Route: 048
     Dates: start: 20240606
  7. DACOMITINIB [Suspect]
     Active Substance: DACOMITINIB
     Dosage: 15 MG, 1X/DAY (1HR BEFORE MEAL)
     Route: 048
     Dates: start: 20240726
  8. DACOMITINIB [Suspect]
     Active Substance: DACOMITINIB
     Dosage: 30 MG, DAILY
     Dates: start: 20241017
  9. DACOMITINIB [Suspect]
     Active Substance: DACOMITINIB
     Dosage: 15 MG, DAILY
     Dates: start: 20241025
  10. DENOSUMAB [Concomitant]
     Active Substance: DENOSUMAB
     Dosage: 120 MG THIS WEEK AND AFTER 3 MONTHS
     Route: 058
  11. DENOSUMAB [Concomitant]
     Active Substance: DENOSUMAB
     Dosage: UNK
     Dates: start: 20241025

REACTIONS (5)
  - Pyogenic granuloma [Unknown]
  - Paronychia [Recovering/Resolving]
  - Blood pressure increased [Unknown]
  - Rash [Unknown]
  - Diarrhoea [Unknown]

NARRATIVE: CASE EVENT DATE: 20230101
